FAERS Safety Report 19501866 (Version 2)
Quarter: 2021Q3

REPORT INFORMATION
  Report Type: Spontaneous
  Country: SG (occurrence: SG)
  Receive Date: 20210707
  Receipt Date: 20210713
  Transmission Date: 20211014
  Serious: Yes (Other)
  Sender: FDA-Public Use
  Company Number: SG-BEH-2021133487

PATIENT
  Age: 6 Month
  Sex: Male

DRUGS (7)
  1. FACTOR VIII RECOMBINANT (NC) [Suspect]
     Active Substance: ANTIHEMOPHILIC FACTOR, HUMAN RECOMBINANT
     Indication: IMMUNE TOLERANCE INDUCTION
     Dosage: 50 INTERNATIONAL UNIT/KILOGRAM, TID (Q8H)
     Route: 065
  2. PHENOBARBITONE [PHENOBARBITAL SODIUM] [Concomitant]
     Active Substance: PHENOBARBITAL SODIUM
     Indication: EPILEPSY
     Route: 065
  3. FACTOR VIII RECOMBINANT (NC) [Suspect]
     Active Substance: ANTIHEMOPHILIC FACTOR, HUMAN RECOMBINANT
     Indication: HAEMORRHAGE INTRACRANIAL
     Dosage: 50 INTERNATIONAL UNIT/KILOGRAM, BIW
     Route: 065
  4. FACTOR VIII RECOMBINANT (NC) [Suspect]
     Active Substance: ANTIHEMOPHILIC FACTOR, HUMAN RECOMBINANT
     Indication: SUBDURAL HAEMORRHAGE
  5. FACTOR VIII RECOMBINANT (NC) [Suspect]
     Active Substance: ANTIHEMOPHILIC FACTOR, HUMAN RECOMBINANT
     Indication: PROPHYLAXIS
     Dosage: 50 INTERNATIONAL UNIT/KILOGRAM, TIW
     Route: 065
  6. FACTOR VIII RECOMBINANT (NC) [Suspect]
     Active Substance: ANTIHEMOPHILIC FACTOR, HUMAN RECOMBINANT
     Indication: FACTOR VIII DEFICIENCY
     Dosage: 50 INTERNATIONAL UNIT/KILOGRAM, TID (Q8H)
     Route: 065
  7. FACTOR VIII RECOMBINANT (NC) [Suspect]
     Active Substance: ANTIHEMOPHILIC FACTOR, HUMAN RECOMBINANT
     Indication: HAEMATOMA MUSCLE
     Dosage: 50 INTERNATIONAL UNIT/KILOGRAM, QD
     Route: 065

REACTIONS (5)
  - Off label use [Unknown]
  - Anti factor VIII antibody positive [Recovered/Resolved]
  - Subdural haemorrhage [Unknown]
  - No adverse event [Unknown]
  - Underdose [Unknown]
